FAERS Safety Report 6288191-1 (Version None)
Quarter: 2009Q3

REPORT INFORMATION
  Report Type: 
  Country: None (occurrence: None)
  Receive Date: 20090729
  Receipt Date: 20090727
  Transmission Date: 20100115
  Serious: Yes (Other)
  Sender: FDA-Public Use
  Company Number: US-BAYER-200923663NA

PATIENT
  Sex: Female

DRUGS (1)
  1. MIRENA [Suspect]
     Indication: PAIN
     Dosage: CONTINUOUS DELIVERY
     Route: 015
     Dates: start: 20090403, end: 20090409

REACTIONS (2)
  - PAIN [None]
  - UTERINE RUPTURE [None]
